FAERS Safety Report 7054041-9 (Version None)
Quarter: 2010Q4

REPORT INFORMATION
  Report Type: 
  Country: None (occurrence: None)
  Receive Date: 20101020
  Receipt Date: 20101014
  Transmission Date: 20110411
  Serious: Yes (Death, Other)
  Sender: FDA-Public Use
  Company Number: JP-BRISTOL-MYERS SQUIBB COMPANY-15269871

PATIENT
  Age: 82 Year

DRUGS (4)
  1. MAXIPIME [Suspect]
     Indication: PNEUMONIA
     Route: 042
     Dates: start: 20100827, end: 20100902
  2. TAKEPRON [Concomitant]
     Dosage: VIA GASTROSTOMY
     Dates: start: 20100823, end: 20100902
  3. MEXITIL [Concomitant]
     Dosage: VIA GASTROSTOMY
     Dates: start: 20100819, end: 20100902
  4. LASIX [Concomitant]
     Route: 042
     Dates: start: 20100828, end: 20100902

REACTIONS (2)
  - PLATELET COUNT DECREASED [None]
  - SEPSIS [None]
